FAERS Safety Report 6801964-9 (Version None)
Quarter: 2010Q2

REPORT INFORMATION
  Report Type: 
  Country: None (occurrence: None)
  Receive Date: 20100629
  Receipt Date: 20100624
  Transmission Date: 20101027
  Serious: Yes (Hospitalization)
  Sender: FDA-Public Use
  Company Number: FR-ABBOTT-10P-056-0653421-00

PATIENT
  Age: 38 Year
  Sex: Female

DRUGS (19)
  1. DEPAKENE [Suspect]
     Indication: EPILEPSY
     Route: 042
     Dates: end: 20100524
  2. DEPAKENE [Suspect]
     Route: 042
     Dates: start: 20100524, end: 20100527
  3. DEPAKENE [Suspect]
     Dosage: INTRA-ABDOMINAL
     Dates: end: 20100527
  4. CANCIDAS [Suspect]
     Indication: DRUG USE FOR UNKNOWN INDICATION
     Route: 048
     Dates: end: 20100527
  5. FLUOXETINE [Suspect]
     Indication: DRUG USE FOR UNKNOWN INDICATION
     Route: 048
     Dates: end: 20100527
  6. CEFTAZIDIME [Concomitant]
     Indication: DRUG USE FOR UNKNOWN INDICATION
     Dates: start: 20100519
  7. MIDAZOLAM HCL [Concomitant]
     Indication: DRUG USE FOR UNKNOWN INDICATION
  8. SUFENTANIL [Concomitant]
     Indication: DRUG USE FOR UNKNOWN INDICATION
  9. ACETAMINOPHEN [Concomitant]
     Indication: DRUG USE FOR UNKNOWN INDICATION
  10. NORADRENALINE [Concomitant]
     Indication: DRUG USE FOR UNKNOWN INDICATION
  11. DOXORUBICIN [Concomitant]
     Indication: DRUG USE FOR UNKNOWN INDICATION
  12. CISPLATIN [Concomitant]
     Indication: DRUG USE FOR UNKNOWN INDICATION
  13. CARBOPLATIN [Concomitant]
     Indication: DRUG USE FOR UNKNOWN INDICATION
  14. HOLOXAN [Concomitant]
     Indication: DRUG USE FOR UNKNOWN INDICATION
  15. TAZOCILLINE [Concomitant]
     Indication: DRUG USE FOR UNKNOWN INDICATION
  16. CILASTATIN/IMIPEN [Concomitant]
     Indication: DRUG USE FOR UNKNOWN INDICATION
  17. TAZOCILLINE [Concomitant]
  18. AMOXICILLIN AND CLAVULANATE POTASSIUM [Concomitant]
     Indication: DRUG USE FOR UNKNOWN INDICATION
  19. GENTAMICIN [Concomitant]
     Indication: DRUG USE FOR UNKNOWN INDICATION

REACTIONS (2)
  - CONVULSION [None]
  - DRUG LEVEL BELOW THERAPEUTIC [None]
